FAERS Safety Report 8793054 (Version 2)
Quarter: 2015Q1

REPORT INFORMATION
  Report Type: Report from Study
  Country: US (occurrence: US)
  Receive Date: 20120918
  Receipt Date: 20150316
  Transmission Date: 20150721
  Serious: Yes (Death)
  Sender: FDA-Public Use
  Company Number: US-ROCHE-1123416

PATIENT
  Sex: Female

DRUGS (12)
  1. TAXOTERE [Concomitant]
     Active Substance: DOCETAXEL
  2. TAXOL [Concomitant]
     Active Substance: PACLITAXEL
     Route: 065
  3. DEXAMETHASONE. [Concomitant]
     Active Substance: DEXAMETHASONE
  4. PROCRIT [Concomitant]
     Active Substance: ERYTHROPOIETIN
  5. ADRIAMYCIN [Concomitant]
     Active Substance: DOXORUBICIN HYDROCHLORIDE
  6. CYTOXAN [Concomitant]
     Active Substance: CYCLOPHOSPHAMIDE
  7. CIMETIDINE [Concomitant]
     Active Substance: CIMETIDINE
  8. XELODA [Suspect]
     Active Substance: CAPECITABINE
     Indication: PRODUCT USED FOR UNKNOWN INDICATION
     Route: 065
  9. NEULASTA [Concomitant]
     Active Substance: PEGFILGRASTIM
     Route: 065
  10. BENADRYL [Concomitant]
     Active Substance: DIPHENHYDRAMINE HYDROCHLORIDE
  11. AVASTIN [Suspect]
     Active Substance: BEVACIZUMAB
     Indication: BREAST CANCER FEMALE
     Route: 065
  12. GEMZAR [Concomitant]
     Active Substance: GEMCITABINE HYDROCHLORIDE
     Route: 065

REACTIONS (9)
  - Lymphocyte count decreased [Unknown]
  - Disease progression [Unknown]
  - Red blood cell count decreased [Unknown]
  - Haemoglobin decreased [Unknown]
  - Diarrhoea [Unknown]
  - Constipation [Unknown]
  - Neutrophil count increased [Unknown]
  - Death [Fatal]
  - Hypoaesthesia [Unknown]
